FAERS Safety Report 5131807-3 (Version None)
Quarter: 2006Q4

REPORT INFORMATION
  Report Type: 
  Country: None (occurrence: None)
  Receive Date: 20061016
  Receipt Date: 20061002
  Transmission Date: 20070319
  Serious: Yes (Hospitalization)
  Sender: FDA-Public Use
  Company Number: 2006118051

PATIENT
  Age: 63 Year
  Sex: Female

DRUGS (8)
  1. DALACIN (CLINDAMYCIN HYDROCHLORIDE) [Suspect]
     Indication: SKIN ULCER
     Dosage: 1 DPN, ORAL
     Route: 048
     Dates: start: 20060505, end: 20060525
  2. CIPROFLOXACIN [Suspect]
     Indication: SKIN ULCER
     Dosage: 1 DFN, ORAL
     Route: 048
     Dates: start: 20060505, end: 20060525
  3. COZAAR [Concomitant]
  4. INSULATARD (INSULIN HUMAN INJECTION) [Concomitant]
  5. PLENDIL [Concomitant]
  6. GLYBURIDE [Concomitant]
  7. GLUCOPHAGE [Concomitant]
  8. TROMBYL (ACETYLSALICYLIC ACIED) [Concomitant]

REACTIONS (5)
  - DISEASE PROGRESSION [None]
  - GUILLAIN-BARRE SYNDROME [None]
  - HYPOAESTHESIA [None]
  - MALAISE [None]
  - MOTOR DYSFUNCTION [None]
